FAERS Safety Report 8495898-4 (Version None)
Quarter: 2012Q3

REPORT INFORMATION
  Report Type: 
  Country: None (occurrence: None)
  Receive Date: 20120709
  Receipt Date: 20120705
  Transmission Date: 20120928
  Serious: Yes (Other)
  Sender: FDA-Public Use
  Company Number: PHEH2011US009598

PATIENT
  Sex: Female
  Weight: 91 kg

DRUGS (5)
  1. TYSABRI [Concomitant]
     Dosage: UNK UKN, UNK
  2. GILENYA [Suspect]
     Indication: MULTIPLE SCLEROSIS
     Dosage: 0.5 MG, QD
     Route: 048
     Dates: start: 20110308
  3. GILENYA [Suspect]
     Dosage: 0.5 MG, QD
     Route: 048
     Dates: start: 20111219
  4. ANTIHYPERTENSIVES [Concomitant]
  5. GILENYA [Suspect]
     Dosage: 2 DF, IN ONE DAY
     Route: 048
     Dates: start: 20111114

REACTIONS (5)
  - OVERDOSE [None]
  - CATARACT [None]
  - MACULAR HOLE [None]
  - VISION BLURRED [None]
  - MUSCLE SPASMS [None]
